FAERS Safety Report 12471776 (Version 1)
Quarter: 2016Q2

REPORT INFORMATION
  Report Type: Spontaneous
  Country: US (occurrence: None)
  Receive Date: 20160615
  Receipt Date: 20160615
  Transmission Date: 20160815
  Serious: Yes (Hospitalization)
  Sender: FDA-Public Use
  Company Number: None

PATIENT
  Age: 45 Year
  Sex: Female
  Weight: 99.9 kg

DRUGS (13)
  1. TUMS [Concomitant]
     Active Substance: CALCIUM CARBONATE
  2. FE [Concomitant]
     Active Substance: IRON
  3. NTG [Concomitant]
     Active Substance: NITROGLYCERIN
  4. CLARITIN [Concomitant]
     Active Substance: LORATADINE
  5. WARFARIN [Concomitant]
     Active Substance: WARFARIN
  6. ECOTRIN [Concomitant]
     Active Substance: ASPIRIN
  7. OXYCODONE [Suspect]
     Active Substance: OXYCODONE
     Route: 048
  8. XANAX [Suspect]
     Active Substance: ALPRAZOLAM
     Indication: ANXIETY
     Dosage: CHRONIC
     Route: 048
  9. ASA [Concomitant]
     Active Substance: ASPIRIN
  10. CARDIZEM [Concomitant]
     Active Substance: DILTIAZEM HYDROCHLORIDE
  11. TOPROL XL [Concomitant]
     Active Substance: METOPROLOL SUCCINATE
  12. SYNTHROID [Concomitant]
     Active Substance: LEVOTHYROXINE SODIUM
  13. OXYCONTIN [Suspect]
     Active Substance: OXYCODONE HYDROCHLORIDE
     Indication: PAIN
     Dosage: CHRONIC
     Route: 048

REACTIONS (5)
  - Sedation [None]
  - Respiratory disorder [None]
  - Overdose [None]
  - Somnolence [None]
  - Lethargy [None]

NARRATIVE: CASE EVENT DATE: 20151021
